FAERS Safety Report 10082144 (Version 1)
Quarter: 2014Q2

REPORT INFORMATION
  Report Type: Spontaneous
  Country: US (occurrence: US)
  Receive Date: 20140416
  Receipt Date: 20140416
  Transmission Date: 20141212
  Serious: No
  Sender: FDA-Public Use
  Company Number: US-TEVA-475895USA

PATIENT
  Age: 49 Year
  Sex: Female

DRUGS (1)
  1. COPAXONE [Suspect]
     Indication: MULTIPLE SCLEROSIS
     Dates: start: 20120414, end: 20120421

REACTIONS (5)
  - Hypersensitivity [Unknown]
  - Eye swelling [Unknown]
  - Oedema peripheral [Unknown]
  - Eyelid ptosis [Unknown]
  - Urticaria [Unknown]
